FAERS Safety Report 26064549 (Version 1)
Quarter: 2025Q4

REPORT INFORMATION
  Report Type: Spontaneous
  Country: US (occurrence: US)
  Receive Date: 20251119
  Receipt Date: 20251119
  Transmission Date: 20260117
  Serious: Yes (Hospitalization)
  Sender: STRIDES
  Company Number: None

PATIENT
  Age: 30 Year
  Sex: Female

DRUGS (2)
  1. IBUPROFEN [Suspect]
     Active Substance: IBUPROFEN
     Indication: Pain
     Dosage: AS NEEDED
     Route: 065
  2. PEMBROLIZUMAB [Concomitant]
     Active Substance: PEMBROLIZUMAB
     Indication: Metastatic choriocarcinoma
     Dosage: RECEIVED SEVENTH CYCLE 11 DAYS BEFORE ADMISSION
     Route: 065

REACTIONS (2)
  - Mucosal erosion [Recovered/Resolved]
  - Gastritis haemorrhagic [Recovered/Resolved]
